FAERS Safety Report 7116156-6 (Version None)
Quarter: 2010Q4

REPORT INFORMATION
  Report Type: 
  Country: None (occurrence: None)
  Receive Date: 20101122
  Receipt Date: 20101110
  Transmission Date: 20110411
  Serious: Yes (Other)
  Sender: FDA-Public Use
  Company Number: PHHY2010US76427

PATIENT
  Sex: Female

DRUGS (2)
  1. FEMARA [Suspect]
     Indication: BREAST NEOPLASM
     Dosage: 2.5 MG, QD
     Route: 048
  2. FEMARA [Suspect]
     Dosage: 2.5 MG, QD
     Route: 048
     Dates: start: 20100101

REACTIONS (4)
  - ARTHROPATHY [None]
  - CORNEAL TRANSPLANT [None]
  - DEPRESSION [None]
  - LIMB DISCOMFORT [None]
